FAERS Safety Report 7757891-6 (Version None)
Quarter: 2011Q3

REPORT INFORMATION
  Report Type: 
  Country: None (occurrence: None)
  Receive Date: 20110918
  Receipt Date: 20110906
  Transmission Date: 20111222
  Serious: Yes (Death)
  Sender: FDA-Public Use
  Company Number: US-BRISTOL-MYERS SQUIBB COMPANY-16066367

PATIENT

DRUGS (1)
  1. CARMUSTINE [Suspect]
     Indication: MALIGNANT GLIOMA
     Route: 042

REACTIONS (1)
  - CANDIDA PNEUMONIA [None]
